FAERS Safety Report 4430318-8 (Version None)
Quarter: 2004Q3

REPORT INFORMATION
  Report Type: 
  Country: None (occurrence: None)
  Receive Date: 20040805
  Receipt Date: 20040721
  Transmission Date: 20050211
  Serious: Yes (Other)
  Sender: FDA-Public Use
  Company Number: 200410214BBE

PATIENT
  Sex: Male

DRUGS (6)
  1. KOATE [Suspect]
     Indication: HAEMOPHILIA
     Dosage: INTRAVENOUS
     Route: 042
  2. KONYNE [Suspect]
     Indication: HAEMOPHILIA
     Dosage: INTRAVENOUS
     Route: 042
  3. FACTOR VIII (BAXTER) (FACTOR VIII) [Suspect]
     Indication: HAEMOPHILIA
     Dosage: INTRAVENOUS
     Route: 042
  4. FACATOR IX (BAXTER) (FACTOR IX) [Suspect]
     Indication: HAEMOPHILIA
     Dosage: INTRAVENOUS
     Route: 042
  5. FACTOR VIII (ALPHA THERAPEUTICS) (FACTOR VIII) [Suspect]
     Indication: HAEMOPHILIA
     Dosage: INTRAVENOUS
     Route: 042
  6. FACTOR IX (ALPHA THERAPEUTICS) (FACTOR IX) [Suspect]
     Indication: HAEMOPHILIA
     Dosage: INTRAVENOUS
     Route: 042

REACTIONS (1)
  - HEPATITIS C [None]
